FAERS Safety Report 7155952-6 (Version None)
Quarter: 2010Q4

REPORT INFORMATION
  Report Type: 
  Country: None (occurrence: None)
  Receive Date: 20101123
  Receipt Date: 20100820
  Transmission Date: 20110411
  Serious: Yes (Hospitalization)
  Sender: FDA-Public Use
  Company Number: 017549

PATIENT
  Sex: Female
  Weight: 63.5 kg

DRUGS (10)
  1. CIMZIA [Suspect]
     Indication: CROHN'S DISEASE
     Dosage: 400 MG X1/MONTH, SUBCUTANEOUS
     Route: 058
     Dates: start: 20100401
  2. ,, [Interacting]
  3. PREDNISONE [Concomitant]
  4. ENTOCORT EC [Concomitant]
  5. LAMICTAL [Concomitant]
  6. ATIVAN [Concomitant]
  7. TRAZODONE HCL [Concomitant]
  8. PROZAC /00724401/ [Concomitant]
  9. DUODOPA [Concomitant]
  10. STRATTERA [Concomitant]

REACTIONS (1)
  - ABDOMINAL PAIN [None]
